FAERS Safety Report 8106274-8 (Version None)
Quarter: 2012Q1

REPORT INFORMATION
  Report Type: 
  Country: None (occurrence: None)
  Receive Date: 20120202
  Receipt Date: 20120127
  Transmission Date: 20120608
  Serious: Yes (Hospitalization)
  Sender: FDA-Public Use
  Company Number: JP-BAYER-200913051BYL

PATIENT
  Age: 79 Year
  Sex: Female
  Weight: 33.6 kg

DRUGS (12)
  1. LIVACT [Concomitant]
     Dosage: 1 DF (DAILY DOSE), , ORAL
     Route: 048
     Dates: start: 20090821
  2. ALOSENN [Concomitant]
     Route: 048
  3. FUROSEMIDE [Concomitant]
     Route: 048
  4. ISOSORBIDE MONONITRATE [Concomitant]
     Dosage: AFTER BREAKFAST AND DINNER
     Route: 048
  5. BLOSTAR M [Concomitant]
     Route: 048
  6. SIGMART [Concomitant]
     Dosage: AFTER BREAKFAST AND DINNER
     Route: 048
  7. ZOLPIDEM [Concomitant]
     Route: 048
  8. FAMOTIDINE [Concomitant]
     Route: 048
  9. ALDACTONE [Concomitant]
     Dosage: AFTER LUNCH
     Route: 048
  10. LIVACT [Concomitant]
     Indication: BLOOD CREATININE INCREASED
     Dosage: AFTER DINNER
     Route: 048
  11. MYOCOR [Concomitant]
     Route: 055
  12. NEXAVAR [Suspect]
     Indication: HEPATIC NEOPLASM MALIGNANT
     Route: 048
     Dates: start: 20090815, end: 20090825

REACTIONS (5)
  - HYPERURICAEMIA [None]
  - RENAL FAILURE ACUTE [None]
  - AMYLASE INCREASED [None]
  - HYPERAMMONAEMIA [None]
  - BLOOD CREATININE INCREASED [None]
